FAERS Safety Report 4582170-8 (Version None)
Quarter: 2005Q1

REPORT INFORMATION
  Report Type: 
  Country: None (occurrence: None)
  Receive Date: 20050210
  Receipt Date: 20050131
  Transmission Date: 20050727
  Serious: Yes (Hospitalization, Other)
  Sender: FDA-Public Use
  Company Number: 2005004121

PATIENT
  Age: 49 Year
  Sex: Male
  Weight: 113.3993 kg

DRUGS (11)
  1. LIPITOR [Suspect]
     Indication: BLOOD CHOLESTEROL
     Dosage: (10 MG, 1 IN 1 D)
     Dates: start: 20020701, end: 20040601
  2. LIPITOR [Suspect]
     Indication: HYPERLIPIDAEMIA
     Dosage: (10 MG, 1 IN 1 D)
     Dates: start: 20020701, end: 20040601
  3. NEURONTIN [Suspect]
     Indication: ILL-DEFINED DISORDER
     Dates: start: 20040101, end: 20040101
  4. BEXTRA [Suspect]
     Indication: PAIN
     Dates: start: 20040601, end: 20040101
  5. LEVOTHYROXINE SODIUM [Suspect]
     Indication: THYROID FUNCTION TEST ABNORMAL
     Dosage: 0.5 MG
  6. PERINDOPRIL ERBUMINE (PERINDOPRIL ERBUMINE) [Suspect]
     Indication: HYPERTENSION
  7. HYDROCHLOROTHIAZIDE [Suspect]
     Indication: HYPERTENSION
  8. TOPIRAMATE [Concomitant]
  9. NAPROXEN SODIUM [Concomitant]
  10. ASPIRIN [Concomitant]
  11. LEVOTHYROXINE SODIUM [Concomitant]

REACTIONS (21)
  - ANXIETY [None]
  - BLOOD CREATINE PHOSPHOKINASE INCREASED [None]
  - BLOOD TESTOSTERONE DECREASED [None]
  - CHEST PAIN [None]
  - DEMYELINATION [None]
  - DEPRESSION [None]
  - DRUG TOXICITY [None]
  - FEELING ABNORMAL [None]
  - HYPERTENSION [None]
  - HYPOAESTHESIA [None]
  - HYPOTHYROIDISM [None]
  - INADEQUATE ANALGESIA [None]
  - LETHARGY [None]
  - MUSCLE TIGHTNESS [None]
  - MUSCLE TWITCHING [None]
  - MUSCULAR WEAKNESS [None]
  - MYALGIA [None]
  - NERVOUSNESS [None]
  - PAIN IN EXTREMITY [None]
  - SLEEP APNOEA SYNDROME [None]
  - THINKING ABNORMAL [None]
